FAERS Safety Report 13321843 (Version 1)
Quarter: 2017Q1

REPORT INFORMATION
  Report Type: Spontaneous
  Country: None (occurrence: US)
  Receive Date: 20170310
  Receipt Date: 20170310
  Transmission Date: 20170428
  Serious: Yes (Death)
  Sender: FDA-Public Use
  Company Number: None

PATIENT
  Age: 4 Year
  Sex: Male
  Weight: 19.9 kg

DRUGS (3)
  1. ETOPOSIDE (VP-16) [Suspect]
     Active Substance: ETOPOSIDE
     Dates: end: 20170302
  2. DAUNORUBICIN [Suspect]
     Active Substance: DAUNORUBICIN
     Dates: end: 20170301
  3. CYTARABINE. [Suspect]
     Active Substance: CYTARABINE
     Dates: end: 20170202

REACTIONS (13)
  - Fluid overload [None]
  - Enterovirus test positive [None]
  - Septic shock [None]
  - Mycoplasma test positive [None]
  - Hypertension [None]
  - Acute kidney injury [None]
  - Serum ferritin increased [None]
  - Pneumonia [None]
  - Acute respiratory distress syndrome [None]
  - Haemorrhage intracranial [None]
  - Respiratory acidosis [None]
  - Blood uric acid increased [None]
  - Human rhinovirus test positive [None]

NARRATIVE: CASE EVENT DATE: 20170305
